FAERS Safety Report 9192760 (Version 2)
Quarter: 2013Q2

REPORT INFORMATION
  Report Type: Spontaneous
  Country: US (occurrence: None)
  Receive Date: 20120703
  Receipt Date: 20121031
  Transmission Date: 20140414
  Serious: Yes (Other)
  Sender: FDA-Public Use
  Company Number: PHEH2012US010501

PATIENT
  Age: 40 Year
  Sex: Male
  Weight: 90.7 kg

DRUGS (8)
  1. GILENYA [Suspect]
     Indication: RELAPSING-REMITTING MULTIPLE SCLEROSIS
     Route: 048
     Dates: start: 20120315, end: 20120516
  2. LISINOPRIL (LISINOPRIL) [Concomitant]
  3. CITALOPRAM (CITALOPRAM) [Concomitant]
  4. NUVIGIL (ARMODAFINIL) [Concomitant]
  5. ENABLEX (DARIFENACIN HYDROBROMIDE) [Concomitant]
  6. CALYSIS [Concomitant]
  7. GABAPENTIN (GABAPENTIN) [Concomitant]
  8. BACLOFEN (BACLOFEN) [Concomitant]

REACTIONS (1)
  - Macular oedema [None]
